FAERS Safety Report 9948151 (Version 2)
Quarter: 2014Q1

REPORT INFORMATION
  Report Type: Report from Study
  Country: US (occurrence: US)
  Receive Date: 20140303
  Receipt Date: 20140303
  Transmission Date: 20141002
  Serious: No
  Sender: FDA-Public Use
  Company Number: US-ABBVIE-12P-163-1026955-00

PATIENT
  Age: 59 Year
  Sex: Female
  Weight: 104.42 kg

DRUGS (11)
  1. HUMIRA [Suspect]
     Indication: RHEUMATOID ARTHRITIS
     Route: 058
     Dates: start: 201210, end: 201212
  2. HUMIRA [Suspect]
     Route: 058
  3. PREDNISONE [Suspect]
     Indication: RHEUMATOID ARTHRITIS
  4. PREDNISONE [Suspect]
  5. SYNTHROID [Concomitant]
     Indication: PRODUCT USED FOR UNKNOWN INDICATION
  6. OXYCODONE [Concomitant]
     Indication: PRODUCT USED FOR UNKNOWN INDICATION
  7. DIOVAN [Concomitant]
     Indication: PRODUCT USED FOR UNKNOWN INDICATION
  8. METHOTREXATE [Concomitant]
     Indication: RHEUMATOID ARTHRITIS
  9. UNKNOWN MEDICATION [Concomitant]
     Indication: BLOOD CHOLESTEROL INCREASED
  10. UNKNOWN MEDICATION [Concomitant]
     Indication: HYPERTENSION
  11. UNKNOWN MEDICATION [Concomitant]
     Indication: THYROID DISORDER

REACTIONS (9)
  - Anosmia [Not Recovered/Not Resolved]
  - Palpitations [Unknown]
  - Upper respiratory tract infection [Recovering/Resolving]
  - Alopecia [Not Recovered/Not Resolved]
  - Drug ineffective [Not Recovered/Not Resolved]
  - Viral infection [Recovered/Resolved]
  - Ear infection [Recovered/Resolved]
  - Dysgeusia [Not Recovered/Not Resolved]
  - Pyrexia [Recovered/Resolved]
